FAERS Safety Report 13381065 (Version 3)
Quarter: 2017Q2

REPORT INFORMATION
  Report Type: Spontaneous
  Country: US (occurrence: US)
  Receive Date: 20170329
  Receipt Date: 20170518
  Transmission Date: 20170830
  Serious: Yes (Other)
  Sender: FDA-Public Use
  Company Number: US-PFIZER INC-2017131916

PATIENT
  Age: 48 Year
  Sex: Female

DRUGS (4)
  1. LYRICA [Suspect]
     Active Substance: PREGABALIN
     Indication: FIBROMYALGIA
     Dosage: 150 MG, 2X/DAY
     Route: 048
  2. LYRICA [Suspect]
     Active Substance: PREGABALIN
     Indication: NEUROPATHY PERIPHERAL
  3. XANAX [Concomitant]
     Active Substance: ALPRAZOLAM
     Dosage: UNK
  4. ZYPREXA [Concomitant]
     Active Substance: OLANZAPINE
     Indication: PARANOIA
     Dosage: 20 MG, 1X/DAY(ONE AT NIGHT)
     Route: 048

REACTIONS (17)
  - Nervous system disorder [Unknown]
  - Nasal congestion [Unknown]
  - Sleep disorder [Unknown]
  - Pain [Unknown]
  - Loss of consciousness [Unknown]
  - Seizure [Unknown]
  - Rhinorrhoea [Unknown]
  - Drug ineffective [Unknown]
  - Appetite disorder [Not Recovered/Not Resolved]
  - Dyspnoea [Unknown]
  - Depression [Not Recovered/Not Resolved]
  - Loss of personal independence in daily activities [Not Recovered/Not Resolved]
  - Condition aggravated [Not Recovered/Not Resolved]
  - Headache [Unknown]
  - Drug tolerance [Unknown]
  - Suicidal ideation [Unknown]
  - Dysphonia [Unknown]

NARRATIVE: CASE EVENT DATE: 2016
